FAERS Safety Report 24917177 (Version 1)
Quarter: 2025Q1

REPORT INFORMATION
  Report Type: Spontaneous
  Country: US (occurrence: None)
  Receive Date: 20250201
  Receipt Date: 20250201
  Transmission Date: 20250408
  Serious: Yes (Hospitalization)
  Sender: FDA-CTU
  Company Number: None

PATIENT
  Age: 74 Year
  Sex: Female
  Weight: 57.15 kg

DRUGS (2)
  1. WINREVAIR [Suspect]
     Active Substance: SOTATERCEPT-CSRK
     Indication: Pulmonary arterial hypertension
     Route: 058
     Dates: start: 202411
  2. OPSUMIT [Concomitant]
     Active Substance: MACITENTAN

REACTIONS (3)
  - Diarrhoea [None]
  - Vomiting [None]
  - Therapy interrupted [None]

NARRATIVE: CASE EVENT DATE: 20241211
